FAERS Safety Report 8142213-1 (Version None)
Quarter: 2012Q1

REPORT INFORMATION
  Report Type: 
  Country: None (occurrence: None)
  Receive Date: 20120216
  Receipt Date: 20120208
  Transmission Date: 20120608
  Serious: Yes (Hospitalization)
  Sender: FDA-Public Use
  Company Number: DE-TEVA-315991GER

PATIENT
  Sex: Male
  Weight: 90 kg

DRUGS (1)
  1. AMOXICILLIN [Suspect]
     Indication: INFLUENZA LIKE ILLNESS
     Dosage: 1000 MILLIGRAM;
     Route: 048
     Dates: start: 20111225

REACTIONS (8)
  - APHTHOUS STOMATITIS [None]
  - DRUG HYPERSENSITIVITY [None]
  - CONJUNCTIVITIS [None]
  - PYREXIA [None]
  - BALANITIS [None]
  - WHITE BLOOD CELL COUNT INCREASED [None]
  - BEHCET'S SYNDROME [None]
  - C-REACTIVE PROTEIN INCREASED [None]
